FAERS Safety Report 24961807 (Version 2)
Quarter: 2025Q1

REPORT INFORMATION
  Report Type: Report from Study
  Country: US (occurrence: US)
  Receive Date: 20250212
  Receipt Date: 20250221
  Transmission Date: 20250409
  Serious: Yes (Hospitalization, Other)
  Sender: AMNEAL
  Company Number: US-AMNEAL PHARMACEUTICALS-2025-AMRX-00439

PATIENT
  Sex: Male

DRUGS (1)
  1. CARBIDOPA\LEVODOPA [Suspect]
     Active Substance: CARBIDOPA\LEVODOPA
     Indication: Product used for unknown indication
     Dosage: 61.25-245 MG,1 CAPSULES, 3 /DAY
     Route: 048

REACTIONS (4)
  - Pelvic fracture [Unknown]
  - Fall [Unknown]
  - Gastrointestinal anastomotic complication [Unknown]
  - Fall [Unknown]

NARRATIVE: CASE EVENT DATE: 20220101
